FAERS Safety Report 15249869 (Version 1)
Quarter: 2018Q3

REPORT INFORMATION
  Report Type: Spontaneous
  Country: JP (occurrence: JP)
  Receive Date: 20180807
  Receipt Date: 20180807
  Transmission Date: 20181010
  Serious: Yes (Death, Hospitalization)
  Sender: FDA-Public Use
  Company Number: JP-TEVA-2018-JP-004099J

PATIENT
  Age: 70 Year
  Sex: Female

DRUGS (1)
  1. SAXIZON [Suspect]
     Active Substance: HYDROCORTISONE SODIUM SUCCINATE
     Indication: PRODUCT USED FOR UNKNOWN INDICATION
     Route: 065
     Dates: start: 201607, end: 201607

REACTIONS (3)
  - Gastric ulcer haemorrhage [Fatal]
  - Duodenal ulcer haemorrhage [Fatal]
  - Cholestasis [Fatal]
